FAERS Safety Report 5675887-5 (Version None)
Quarter: 2008Q1

REPORT INFORMATION
  Report Type: 
  Country: None (occurrence: None)
  Receive Date: 20080321
  Receipt Date: 20080310
  Transmission Date: 20080703
  Serious: Yes (Congenital Anomaly)
  Sender: FDA-Public Use
  Company Number: A0681917A

PATIENT
  Sex: Female

DRUGS (2)
  1. PAXIL [Suspect]
     Dates: start: 19990101
  2. VITAMIN TAB [Concomitant]
     Indication: PREGNANCY
     Dates: start: 20010401, end: 20020401

REACTIONS (4)
  - CARDIAC MURMUR [None]
  - DRUG EXPOSURE DURING PREGNANCY [None]
  - TACHYPNOEA [None]
  - VENTRICULAR SEPTAL DEFECT [None]
